FAERS Safety Report 4756370-8 (Version None)
Quarter: 2005Q3

REPORT INFORMATION
  Report Type: 
  Country: None (occurrence: None)
  Receive Date: 20050830
  Receipt Date: 20050610
  Transmission Date: 20060218
  Serious: No
  Sender: FDA-Public Use
  Company Number: US-GLAXOSMITHKLINE-A0562106A

PATIENT
  Age: 77 Year
  Sex: Female

DRUGS (4)
  1. WELLBUTRIN XL [Suspect]
     Indication: FIBROMYALGIA
     Dosage: 150MG PER DAY
     Route: 048
     Dates: start: 20050607
  2. AVAPRO [Concomitant]
  3. MOTRIN [Concomitant]
  4. TYLENOL [Concomitant]

REACTIONS (5)
  - ASTHENIA [None]
  - DYSARTHRIA [None]
  - INSOMNIA [None]
  - SOMNOLENCE [None]
  - TREMOR [None]
